FAERS Safety Report 16339095 (Version 1)
Quarter: 2019Q2

REPORT INFORMATION
  Report Type: Spontaneous
  Country: DE (occurrence: DE)
  Receive Date: 20190521
  Receipt Date: 20190521
  Transmission Date: 20190711
  Serious: Yes (Other)
  Sender: FDA-Public Use
  Company Number: DE-PFIZER INC-2019206218

PATIENT
  Sex: Female
  Weight: 94 kg

DRUGS (9)
  1. EUTHYROX [Suspect]
     Active Substance: LEVOTHYROXINE SODIUM
     Indication: AUTOIMMUNE THYROIDITIS
     Dosage: 112 UG, 1X/DAY
  2. SIMVA [Suspect]
     Active Substance: SIMVASTATIN
     Dosage: 20 MG, UNK
     Route: 048
     Dates: start: 201808
  3. BROMAZEPAM 6 1A PHARMA [Suspect]
     Active Substance: BROMAZEPAM
     Dosage: UNK
     Route: 048
     Dates: start: 201808
  4. DEXCEL IBUPROFEN [Suspect]
     Active Substance: IBUPROFEN
     Dosage: 5 MG, UNK
     Route: 065
     Dates: start: 201808
  5. CANDESARTAN. [Suspect]
     Active Substance: CANDESARTAN
     Indication: BLOOD PRESSURE FLUCTUATION
     Dosage: 8 MG, UNK
     Route: 048
     Dates: start: 201808
  6. AMLODIPINE BESILATE [Suspect]
     Active Substance: AMLODIPINE BESYLATE
     Indication: BLOOD PRESSURE FLUCTUATION
     Dosage: UNK
     Route: 048
     Dates: start: 201808
  7. METOPROLOLSUCCINAT DURA [Suspect]
     Active Substance: METOPROLOL SUCCINATE
     Indication: BLOOD PRESSURE FLUCTUATION
     Dosage: UNK
     Route: 048
     Dates: start: 201808
  8. ZOLPIDEM AL [Suspect]
     Active Substance: ZOLPIDEM TARTRATE
     Dosage: 5 MG, UNK
     Route: 048
     Dates: start: 201808
  9. EUTHYROX [Suspect]
     Active Substance: LEVOTHYROXINE SODIUM
     Dosage: 125 UG, 1X/DAY
     Route: 048
     Dates: start: 1983

REACTIONS (5)
  - Disturbance in attention [Recovering/Resolving]
  - Confusional state [Recovering/Resolving]
  - Feeling hot [Recovering/Resolving]
  - Arrhythmia [Recovering/Resolving]
  - Visual impairment [Not Recovered/Not Resolved]
